FAERS Safety Report 12313372 (Version 1)
Quarter: 2016Q2

REPORT INFORMATION
  Report Type: Spontaneous
  Country: US (occurrence: None)
  Receive Date: 20160427
  Receipt Date: 20160427
  Transmission Date: 20160815
  Serious: Yes (Hospitalization)
  Sender: FDA-Public Use
  Company Number: None

PATIENT
  Age: 28 Year
  Sex: Male
  Weight: 81.6 kg

DRUGS (6)
  1. PREDNISOLONE. [Suspect]
     Active Substance: PREDNISOLONE
  2. DOXORUBICIN [Suspect]
     Active Substance: DOXORUBICIN
  3. CYCLOPHOSPHAMIDE. [Suspect]
     Active Substance: CYCLOPHOSPHAMIDE
  4. ETOPOSIDE. [Suspect]
     Active Substance: ETOPOSIDE
  5. VINCRISTINE [Suspect]
     Active Substance: VINCRISTINE
  6. RITUXIMAB [Suspect]
     Active Substance: RITUXIMAB

REACTIONS (3)
  - Swelling [None]
  - Staphylococcus test positive [None]
  - Ultrasound Doppler abnormal [None]

NARRATIVE: CASE EVENT DATE: 20160411
